FAERS Safety Report 6298191-3 (Version None)
Quarter: 2009Q3

REPORT INFORMATION
  Report Type: 
  Country: None (occurrence: None)
  Receive Date: 20090805
  Receipt Date: 20090728
  Transmission Date: 20100115
  Serious: Yes (Other)
  Sender: FDA-Public Use
  Company Number: ZA-BRISTOL-MYERS SQUIBB COMPANY-14230163

PATIENT
  Age: 31 Year
  Sex: Female

DRUGS (7)
  1. EFAVIRENZ TABS 600 MG [Suspect]
     Indication: HIV INFECTION
     Dosage: GIVEN IN THE EVENING(PM).
     Route: 048
     Dates: start: 20060104, end: 20080506
  2. STAVUDINE [Suspect]
     Route: 048
     Dates: start: 20060104, end: 20080506
  3. LAMIVUDINE [Suspect]
     Route: 048
     Dates: start: 20060104, end: 20080506
  4. LAMZID [Suspect]
     Dosage: 2 DF= 2 TABLETS
     Route: 048
     Dates: start: 20080507
  5. NEVIRAPINE [Suspect]
     Route: 048
     Dates: start: 20080507
  6. ASCORBIC ACID [Concomitant]
  7. VITAMIN B COMPLEX CAP [Concomitant]

REACTIONS (2)
  - ABORTION SPONTANEOUS [None]
  - PREGNANCY [None]
